FAERS Safety Report 16404783 (Version 1)
Quarter: 2019Q2

REPORT INFORMATION
  Report Type: Report from Study
  Country: US (occurrence: US)
  Receive Date: 20190607
  Receipt Date: 20190607
  Transmission Date: 20190711
  Serious: Yes (Hospitalization, Other)
  Sender: FDA-Public Use
  Company Number: US-GILEAD-2019-0412135

PATIENT
  Age: 43 Year
  Sex: Female

DRUGS (8)
  1. POTASSIUM CHLORIDE. [Concomitant]
     Active Substance: POTASSIUM CHLORIDE
  2. TADALAFIL. [Concomitant]
     Active Substance: TADALAFIL
  3. AMBRISENTAN [Suspect]
     Active Substance: AMBRISENTAN
     Indication: PULMONARY ARTERIAL HYPERTENSION
     Dosage: 10 MG, QD
     Route: 065
     Dates: start: 20171216
  4. FUROSEMIDE. [Concomitant]
     Active Substance: FUROSEMIDE
  5. ADCIRCA [Concomitant]
     Active Substance: TADALAFIL
  6. DIGITEK [Concomitant]
     Active Substance: DIGOXIN
  7. OMEPRAZOLE. [Concomitant]
     Active Substance: OMEPRAZOLE
  8. RHOGAM [Concomitant]
     Active Substance: HUMAN RHO(D) IMMUNE GLOBULIN

REACTIONS (1)
  - Pulmonary hypertension [Not Recovered/Not Resolved]

NARRATIVE: CASE EVENT DATE: 201905
